FAERS Safety Report 23039325 (Version 1)
Quarter: 2023Q4

REPORT INFORMATION
  Report Type: Spontaneous
  Country: US (occurrence: None)
  Receive Date: 20231006
  Receipt Date: 20231006
  Transmission Date: 20240110
  Serious: Yes (Hospitalization)
  Sender: FDA-Public Use
  Company Number: None

PATIENT
  Sex: Male
  Weight: 121.1 kg

DRUGS (8)
  1. CYCLOPHOSPHAMIDE [Suspect]
     Active Substance: CYCLOPHOSPHAMIDE
     Dates: end: 20190611
  2. CYTARABINE [Suspect]
     Active Substance: CYTARABINE
     Dates: end: 20190621
  3. DAUNORUBICIN [Suspect]
     Active Substance: DAUNORUBICIN
     Dates: end: 20190521
  4. DEXAMETHASONE [Suspect]
     Active Substance: DEXAMETHASONE
     Dates: end: 20190321
  5. METHOTREXATE [Suspect]
     Active Substance: METHOTREXATE
     Dates: end: 20190606
  6. ONCASPAR [Suspect]
     Active Substance: PEGASPARGASE
     Dates: end: 20190529
  7. RITUXIMAB [Suspect]
     Active Substance: RITUXIMAB
     Dates: end: 20190505
  8. VINCRISTINE SULFATE [Suspect]
     Active Substance: VINCRISTINE SULFATE
     Dates: end: 20190321

REACTIONS (16)
  - Cardiac failure congestive [None]
  - Pulmonary oedema [None]
  - Acute kidney injury [None]
  - Hypertransaminasaemia [None]
  - Atrial fibrillation [None]
  - Myocardial ischaemia [None]
  - Hyperkalaemia [None]
  - Hypervolaemia [None]
  - Left ventricular dilatation [None]
  - Hypokinesia [None]
  - Right atrial dilatation [None]
  - Inferior vena cava dilatation [None]
  - Pulmonary hypertension [None]
  - Myocarditis [None]
  - Cardiotoxicity [None]
  - Cardiorenal syndrome [None]

NARRATIVE: CASE EVENT DATE: 20230917
